FAERS Safety Report 6973375-7 (Version None)
Quarter: 2010Q3

REPORT INFORMATION
  Report Type: 
  Country: None (occurrence: None)
  Receive Date: 20100909
  Receipt Date: 20100830
  Transmission Date: 20110219
  Serious: Yes (Hospitalization)
  Sender: FDA-Public Use
  Company Number: JP-SANOFI-AVENTIS-2010SA040794

PATIENT
  Age: 43 Year
  Sex: Female
  Weight: 71 kg

DRUGS (60)
  1. LASIX [Suspect]
     Indication: OEDEMA
     Route: 048
     Dates: start: 20070526, end: 20080301
  2. LASIX [Suspect]
     Route: 048
     Dates: start: 20080405, end: 20100609
  3. HERBAL PREPARATION [Suspect]
     Indication: PRODUCT USED FOR UNKNOWN INDICATION
     Route: 048
     Dates: end: 20100607
  4. WINTERMIN [Suspect]
     Indication: INSOMNIA
     Dosage: 50 MG X1, 25 MG X1, 50 MG X1
     Route: 048
     Dates: start: 20100430, end: 20100609
  5. WINTERMIN [Suspect]
     Dosage: 50 MG X1, 25 MG X1, 50 MG X1
     Route: 048
     Dates: start: 20100430, end: 20100609
  6. WINTERMIN [Suspect]
     Route: 048
     Dates: start: 20100218, end: 20100305
  7. WINTERMIN [Suspect]
     Route: 048
     Dates: start: 20100218, end: 20100305
  8. WINTERMIN [Suspect]
     Route: 048
     Dates: start: 20100306, end: 20100429
  9. WINTERMIN [Suspect]
     Route: 048
     Dates: start: 20100306, end: 20100429
  10. TRAVELMIN [Concomitant]
     Route: 048
     Dates: start: 20090508, end: 20100609
  11. VEGETAMIN A [Concomitant]
     Indication: INSOMNIA
     Dosage: 1-2 TABLETS A DOSE
     Route: 048
     Dates: start: 20100227, end: 20100311
  12. VEGETAMIN A [Concomitant]
     Dosage: 1-2 TABLETS A DOSE
     Route: 048
     Dates: start: 20100227, end: 20100311
  13. VEGETAMIN A [Concomitant]
     Dosage: 1-2 TABLETS A DOSE
     Route: 048
     Dates: start: 20100312, end: 20100609
  14. VEGETAMIN A [Concomitant]
     Dosage: 1-2 TABLETS A DOSE
     Route: 048
     Dates: start: 20100312, end: 20100609
  15. NAUZELIN [Concomitant]
     Indication: VOMITING
     Route: 048
     Dates: start: 20090508
  16. BIPERIDEN HYDROCHLORIDE TAB [Concomitant]
     Indication: PARKINSONISM
     Route: 048
     Dates: start: 20090508, end: 20100205
  17. BIPERIDEN HYDROCHLORIDE TAB [Concomitant]
     Dosage: 2-4 TIMES A DAY
     Route: 048
     Dates: start: 20100206, end: 20100214
  18. BIPERIDEN HYDROCHLORIDE TAB [Concomitant]
     Dosage: 1-2 MG A DOSE
     Route: 048
     Dates: start: 20100215, end: 20100226
  19. BIPERIDEN HYDROCHLORIDE TAB [Concomitant]
     Dosage: 1-2 MG A DOSE, 3-4 TIMES A DAY
     Route: 048
     Dates: start: 20100227, end: 20100311
  20. BIPERIDEN HYDROCHLORIDE TAB [Concomitant]
     Route: 048
     Dates: start: 20100312
  21. ATARAX [Concomitant]
     Indication: PARKINSONISM
     Route: 048
     Dates: start: 20090508, end: 20100217
  22. ATARAX [Concomitant]
     Route: 048
     Dates: start: 20100218
  23. SELBEX [Concomitant]
     Indication: GASTRITIS
     Route: 048
     Dates: start: 20090508
  24. SOLANAX [Concomitant]
     Indication: ANXIETY
     Route: 048
     Dates: start: 20090508, end: 20090714
  25. SOLANAX [Concomitant]
     Route: 048
     Dates: start: 20090715, end: 20090901
  26. SOLANAX [Concomitant]
     Dosage: 0.4-0.8 MG A DOSE
     Route: 048
     Dates: start: 20090902, end: 20090923
  27. SOLANAX [Concomitant]
     Dosage: 0.4-0.8 MG A DOSE
     Route: 048
     Dates: start: 20090924
  28. SILECE [Concomitant]
     Indication: INSOMNIA
     Route: 048
     Dates: start: 20090508, end: 20090923
  29. SILECE [Concomitant]
     Route: 048
     Dates: start: 20090924
  30. RISPERDAL [Concomitant]
     Dosage: 0-0.5 ML A DOSE, 0-1 TIME A DAY
     Route: 048
     Dates: start: 20090508, end: 20090617
  31. RISPERDAL [Concomitant]
     Indication: DELUSION
     Dosage: 0-0.5 ML A DOSE, 0-1 TIME A DAY
     Route: 048
     Dates: start: 20090508, end: 20090617
  32. RISPERDAL [Concomitant]
     Indication: IMPULSIVE BEHAVIOUR
     Dosage: 0-0.5 ML A DOSE, 0-1 TIME A DAY
     Route: 048
     Dates: start: 20090508, end: 20090617
  33. RISPERDAL [Concomitant]
     Dosage: 1-2 TIMES A DAY
     Route: 048
     Dates: start: 20090520, end: 20090818
  34. RISPERDAL [Concomitant]
     Dosage: 1-2 TIMES A DAY
     Route: 048
     Dates: start: 20090520, end: 20090818
  35. RISPERDAL [Concomitant]
     Dosage: 1-2 TIMES A DAY
     Route: 048
     Dates: start: 20090520, end: 20090818
  36. RISPERDAL [Concomitant]
     Dosage: 3-4 TIMES A DAY
     Route: 048
     Dates: start: 20090819, end: 20090923
  37. RISPERDAL [Concomitant]
     Dosage: 3-4 TIMES A DAY
     Route: 048
     Dates: start: 20090819, end: 20090923
  38. RISPERDAL [Concomitant]
     Dosage: 3-4 TIMES A DAY
     Route: 048
     Dates: start: 20090819, end: 20090923
  39. RISPERDAL [Concomitant]
     Dosage: 1-2 ML A DOSE, 3-5 TIMES A DAY
     Route: 048
     Dates: start: 20090924, end: 20091008
  40. RISPERDAL [Concomitant]
     Dosage: 1-2 ML A DOSE, 3-5 TIMES A DAY
     Route: 048
     Dates: start: 20090924, end: 20091008
  41. RISPERDAL [Concomitant]
     Dosage: 1-2 ML A DOSE, 3-5 TIMES A DAY
     Route: 048
     Dates: start: 20090924, end: 20091008
  42. RISPERDAL [Concomitant]
     Dosage: 1-2 ML A DOSE
     Route: 048
     Dates: start: 20091009, end: 20091105
  43. RISPERDAL [Concomitant]
     Dosage: 1-2 ML A DOSE
     Route: 048
     Dates: start: 20091009, end: 20091105
  44. RISPERDAL [Concomitant]
     Dosage: 1-2 ML A DOSE
     Route: 048
     Dates: start: 20091009, end: 20091105
  45. RISPERDAL [Concomitant]
     Dosage: 1-2 ML A DOSE, 2-3 TIMES A DAY
     Route: 048
     Dates: start: 20091106, end: 20091203
  46. RISPERDAL [Concomitant]
     Dosage: 1-2 ML A DOSE, 2-3 TIMES A DAY
     Route: 048
     Dates: start: 20091106, end: 20091203
  47. RISPERDAL [Concomitant]
     Dosage: 1-2 ML A DOSE, 2-3 TIMES A DAY
     Route: 048
     Dates: start: 20091106, end: 20091203
  48. RISPERDAL [Concomitant]
     Dosage: 2-3 TIMES A DAY
     Route: 048
     Dates: start: 20091204, end: 20100126
  49. RISPERDAL [Concomitant]
     Dosage: 2-3 TIMES A DAY
     Route: 048
     Dates: start: 20091204, end: 20100126
  50. RISPERDAL [Concomitant]
     Dosage: 2-3 TIMES A DAY
     Route: 048
     Dates: start: 20091204, end: 20100126
  51. RISPERDAL [Concomitant]
     Dosage: 1-2 ML A DOSE, 3-4 TIMES A DAY
     Route: 048
     Dates: start: 20100127, end: 20100415
  52. RISPERDAL [Concomitant]
     Dosage: 1-2 ML A DOSE, 3-4 TIMES A DAY
     Route: 048
     Dates: start: 20100127, end: 20100415
  53. RISPERDAL [Concomitant]
     Dosage: 1-2 ML A DOSE, 3-4 TIMES A DAY
     Route: 048
     Dates: start: 20100127, end: 20100415
  54. RISPERDAL [Concomitant]
     Dosage: 2-3 TIMES A DAY
     Route: 048
     Dates: start: 20100416, end: 20100607
  55. RISPERDAL [Concomitant]
     Dosage: 2-3 TIMES A DAY
     Route: 048
     Dates: start: 20100416, end: 20100607
  56. RISPERDAL [Concomitant]
     Dosage: 2-3 TIMES A DAY
     Route: 048
     Dates: start: 20100416, end: 20100607
  57. RISPERDAL [Concomitant]
     Route: 048
     Dates: start: 20100608
  58. RISPERDAL [Concomitant]
     Route: 048
     Dates: start: 20100608
  59. RISPERDAL [Concomitant]
     Route: 048
     Dates: start: 20100608
  60. FERROUS SULFATE [Concomitant]
     Indication: IRON DEFICIENCY ANAEMIA
     Route: 048
     Dates: start: 20090508

REACTIONS (2)
  - HYPOKALAEMIA [None]
  - VENTRICULAR TACHYCARDIA [None]
